FAERS Safety Report 10160121 (Version 2)
Quarter: 2014Q2

REPORT INFORMATION
  Report Type: Report from Study
  Country: AU (occurrence: AU)
  Receive Date: 20140508
  Receipt Date: 20140618
  Transmission Date: 20141212
  Serious: Yes (Other)
  Sender: FDA-Public Use
  Company Number: PHHY2014AU054981

PATIENT
  Age: 61 Year
  Sex: Female

DRUGS (7)
  1. ACLASTA [Suspect]
     Indication: OSTEOPOROSIS
     Dosage: 5 MG, UNK
     Route: 042
     Dates: start: 20090323
  2. ACLASTA [Suspect]
     Dosage: 5 MG, UNK
     Route: 042
     Dates: start: 20100323
  3. ACLASTA [Suspect]
     Dosage: 5 MG, UNK
     Route: 042
     Dates: start: 20110328
  4. ACLASTA [Suspect]
     Dosage: 5 MG, UNK
     Route: 042
     Dates: start: 20121010
  5. ACLASTA [Suspect]
     Dosage: 5 MG, UNK
     Route: 042
     Dates: start: 20140503
  6. CALTRATE [Concomitant]
     Dosage: 600 MG (PER DAY)
     Route: 048
  7. OSTELIN [Concomitant]
     Indication: OSTEOPOROSIS
     Dosage: 1000 IU (PER DAY)
     Route: 048

REACTIONS (3)
  - Wrist fracture [Recovered/Resolved]
  - Fall [Not Recovered/Not Resolved]
  - Toothache [Not Recovered/Not Resolved]
